FAERS Safety Report 13814949 (Version 2)
Quarter: 2022Q3

REPORT INFORMATION
  Report Type: Spontaneous
  Country: US (occurrence: US)
  Receive Date: 20170731
  Receipt Date: 20220922
  Transmission Date: 20221027
  Serious: No
  Sender: FDA-Public Use
  Company Number: US-SA-2017SA116443

PATIENT
  Age: 75 Year
  Sex: Male

DRUGS (1)
  1. KETEK [Suspect]
     Active Substance: TELITHROMYCIN
     Indication: Lyme disease
     Dosage: UNK
     Route: 048

REACTIONS (2)
  - Drug ineffective [Unknown]
  - Expired product administered [Unknown]
